FAERS Safety Report 9106655 (Version 5)
Quarter: 2013Q3

REPORT INFORMATION
  Report Type: Spontaneous
  Country: US (occurrence: US)
  Receive Date: 20130222
  Receipt Date: 20130826
  Transmission Date: 20140515
  Serious: Yes (Hospitalization)
  Sender: FDA-Public Use
  Company Number: US-UCBSA-077956

PATIENT
  Age: 20 Year
  Sex: Male
  Weight: 60.3 kg

DRUGS (5)
  1. CIMZIA [Suspect]
     Indication: CROHN^S DISEASE
     Dosage: LAST DOSE WAS ON 31-MAY-2013, NEXT DOSE WAS SCHEDULED ON 21-JUN-2013.
     Dates: start: 201103
  2. BENTYL [Concomitant]
     Indication: ABDOMINAL PAIN
     Route: 048
     Dates: start: 20130207
  3. PREDNISONE [Concomitant]
     Indication: CROHN^S DISEASE
     Dosage: 20 MG DAILY
     Route: 048
     Dates: start: 20130207
  4. IMURAN [Concomitant]
     Indication: CROHN^S DISEASE
     Dosage: 100 MG DAILY
     Route: 048
     Dates: start: 20121119
  5. IMODIUM [Concomitant]
     Indication: CROHN^S DISEASE
     Dosage: 1 TAB Q/12 HRS
     Route: 048
     Dates: start: 20120910

REACTIONS (4)
  - Crohn^s disease [Recovered/Resolved]
  - Influenza [Recovered/Resolved]
  - Dehydration [Recovered/Resolved]
  - Haematochezia [Recovered/Resolved]
